FAERS Safety Report 7175223-1 (Version None)
Quarter: 2010Q4

REPORT INFORMATION
  Report Type: 
  Country: None (occurrence: None)
  Receive Date: 20101220
  Receipt Date: 20100301
  Transmission Date: 20110411
  Serious: Yes (Other)
  Sender: FDA-Public Use
  Company Number: US-AMGEN-TCS396289

PATIENT

DRUGS (1)
  1. ENBREL [Suspect]
     Indication: RHEUMATOID ARTHRITIS
     Dosage: 50 MG, QWK
     Route: 058
     Dates: start: 20060601

REACTIONS (5)
  - CATARACT [None]
  - IMPAIRED HEALING [None]
  - RHEUMATOID ARTHRITIS [None]
  - SKIN CANCER [None]
  - SKIN LESION [None]
